FAERS Safety Report 4972866-8 (Version None)
Quarter: 2006Q2

REPORT INFORMATION
  Report Type: 
  Country: None (occurrence: None)
  Receive Date: 20060410
  Receipt Date: 20060323
  Transmission Date: 20061013
  Serious: Yes (Hospitalization)
  Sender: FDA-Public Use
  Company Number: DSA_70876_2006

PATIENT
  Age: 70 Year
  Sex: Female
  Weight: 81.6475 kg

DRUGS (2)
  1. DARVOCET-N 100 [Suspect]
     Indication: BACK PAIN
     Dosage: DF
  2. BONIVA [Suspect]
     Indication: OSTEOPOROSIS
     Dosage: 1 TAB Q28D
     Dates: start: 20060201, end: 20060301

REACTIONS (5)
  - BACK PAIN [None]
  - CONFUSIONAL STATE [None]
  - DIFFICULTY IN WALKING [None]
  - MEMORY IMPAIRMENT [None]
  - PYREXIA [None]
